FAERS Safety Report 11080319 (Version 1)
Quarter: 2015Q2

REPORT INFORMATION
  Report Type: Spontaneous
  Country: IT (occurrence: None)
  Receive Date: 20150429
  Receipt Date: 20150429
  Transmission Date: 20150821
  Serious: Yes (Death)
  Sender: FDA-Public Use
  Company Number: COR_00092_2014

PATIENT
  Sex: Female

DRUGS (2)
  1. PACLITAXEL. [Suspect]
     Active Substance: PACLITAXEL
     Indication: OVARIAN CANCER
     Dosage: (175 MG/M^2 1X/21 DAYS, [175/MG/M^2 ONCE EVERY 21 DAYS GIVEN OVER 3 HOURS FOR 6 CYCLES] INTRAVENOUS (NOT OTHERWISE SPECIFIED))
     Route: 042
  2. CARBOPLATIN. [Suspect]
     Active Substance: CARBOPLATIN
     Indication: OVARIAN CANCER
     Dosage: ([DOSE CALCULATED USING AUC 5 MG/ML PER MIN, GIVEN OVER 30 MINUTES ONCE EVERY 3 WEEKS, FOR 6-CYCLES] INTRAVENOUS (NOT OTHERWISE SPECIFIED))
     Route: 042

REACTIONS (1)
  - Febrile neutropenia [None]
